FAERS Safety Report 15696910 (Version 4)
Quarter: 2019Q2

REPORT INFORMATION
  Report Type: Spontaneous
  Country: US (occurrence: US)
  Receive Date: 20181206
  Receipt Date: 20190405
  Transmission Date: 20190711
  Serious: No
  Sender: FDA-Public Use
  Company Number: US-PFIZER INC-2018495352

PATIENT
  Age: 66 Year
  Sex: Male
  Weight: 92 kg

DRUGS (5)
  1. IBRANCE [Suspect]
     Active Substance: PALBOCICLIB
     Indication: BREAST CANCER MALE
     Dosage: 125 MG, CYCLIC (ONCE A DAY FOR 21 DAYS)
     Route: 048
     Dates: start: 201811
  2. IBRANCE [Suspect]
     Active Substance: PALBOCICLIB
     Dosage: 125 MG, CYCLIC (TAKES 1 CAPSULE PER DAY FOR 21 DAYS AND THEN OFF FOR 7 DAYS)
     Route: 048
     Dates: start: 201810, end: 20190319
  3. LUPIN [Concomitant]
     Indication: BREAST CANCER MALE
     Dosage: UNK
     Dates: start: 2016
  4. ANASTROZOLE. [Concomitant]
     Active Substance: ANASTROZOLE
     Indication: BREAST CANCER MALE
     Dosage: 1 MG, DAILY
     Route: 048
     Dates: start: 2016
  5. IBRANCE [Suspect]
     Active Substance: PALBOCICLIB
     Dosage: 100 MG, UNK

REACTIONS (8)
  - Anxiety [Not Recovered/Not Resolved]
  - Product use issue [Unknown]
  - White blood cell count decreased [Unknown]
  - Tremor [Not Recovered/Not Resolved]
  - Product dispensing error [Unknown]
  - Feeling of body temperature change [Not Recovered/Not Resolved]
  - Hot flush [Not Recovered/Not Resolved]
  - Discomfort [Unknown]

NARRATIVE: CASE EVENT DATE: 201810
